FAERS Safety Report 5755758-6 (Version None)
Quarter: 2008Q2

REPORT INFORMATION
  Report Type: 
  Country: None (occurrence: None)
  Receive Date: 20080602
  Receipt Date: 20080523
  Transmission Date: 20081010
  Serious: Yes (Congenital Anomaly)
  Sender: FDA-Public Use
  Company Number: GB-ABBOTT-08P-167-0441207-00

PATIENT
  Sex: Female

DRUGS (3)
  1. VALPROATE SODIUM [Suspect]
     Indication: DRUG EXPOSURE DURING PREGNANCY
     Route: 064
  2. PHENYTOIN [Suspect]
     Indication: DRUG EXPOSURE DURING PREGNANCY
     Route: 064
  3. VIGABATRIN [Suspect]
     Indication: DRUG EXPOSURE DURING PREGNANCY
     Route: 064

REACTIONS (28)
  - AGGRESSION [None]
  - ANOMALY OF ORBIT, CONGENITAL [None]
  - CARDIAC MURMUR [None]
  - CARDIAC SEPTAL DEFECT [None]
  - COGNITIVE DISORDER [None]
  - CONGENITAL HAIR DISORDER [None]
  - CONGENITAL HEARING DISORDER [None]
  - CONGENITAL NOSE MALFORMATION [None]
  - DEVELOPMENTAL DELAY [None]
  - DISTURBANCE IN ATTENTION [None]
  - DRUG EXPOSURE DURING PREGNANCY [None]
  - DYSMORPHISM [None]
  - FINE MOTOR DELAY [None]
  - FOETAL ANTICONVULSANT SYNDROME [None]
  - FOOT DEFORMITY [None]
  - GAIT DISTURBANCE [None]
  - HAEMANGIOMA [None]
  - HYPERMETROPIA [None]
  - HYPOTONIA [None]
  - IRRITABILITY [None]
  - LEARNING DISORDER [None]
  - LIP DISORDER [None]
  - LOWER RESPIRATORY TRACT INFECTION [None]
  - OTITIS MEDIA [None]
  - READING DISORDER [None]
  - SKULL MALFORMATION [None]
  - SPEECH DISORDER DEVELOPMENTAL [None]
  - STRABISMUS CONGENITAL [None]
